FAERS Safety Report 7719606-7 (Version None)
Quarter: 2011Q3

REPORT INFORMATION
  Report Type: 
  Country: None (occurrence: None)
  Receive Date: 20110830
  Receipt Date: 20110824
  Transmission Date: 20111222
  Serious: Yes (Hospitalization, Other)
  Sender: FDA-Public Use
  Company Number: US-BRISTOL-MYERS SQUIBB COMPANY-15841505

PATIENT
  Age: 75 Year
  Sex: Female
  Weight: 74 kg

DRUGS (6)
  1. ATIVAN [Concomitant]
  2. YERVOY [Suspect]
     Indication: MALIGNANT MELANOMA
     Dosage: NO OF CYCLES:2,SECOND ON 31MAY11
     Route: 042
     Dates: start: 20110511, end: 20110531
  3. SYNTHROID [Concomitant]
  4. TRAMADOL HCL [Concomitant]
  5. BENICAR [Concomitant]
  6. MDX-1106 [Suspect]
     Indication: NEOPLASM MALIGNANT
     Dosage: 0.3MG/KG (CYL-2)ON 24JAN11-8MAR11 DOSE 4,DOSE INCREASED TO 1 MG/KG (CYL-2)ON 22MAR11-3MAY11 DOSE 4.
     Route: 042
     Dates: start: 20110124, end: 20110503

REACTIONS (6)
  - TRANSAMINASES INCREASED [None]
  - RENAL FAILURE ACUTE [None]
  - PANCYTOPENIA [None]
  - HYPOTENSION [None]
  - DEHYDRATION [None]
  - BLOOD BILIRUBIN INCREASED [None]
